FAERS Safety Report 11322006 (Version 1)
Quarter: 2015Q3

REPORT INFORMATION
  Report Type: Spontaneous
  Country: GR (occurrence: GR)
  Receive Date: 20150729
  Receipt Date: 20150729
  Transmission Date: 20151125
  Serious: Yes (Other)
  Sender: FDA-Public Use
  Company Number: PHHY2015GR086727

PATIENT
  Sex: Male

DRUGS (10)
  1. NEBIDO [Concomitant]
     Active Substance: TESTOSTERONE UNDECANOATE
     Indication: HYPOGONADISM
     Dosage: 1X1/ QUARTER
     Route: 065
  2. DESFERAL [Suspect]
     Active Substance: DEFEROXAMINE MESYLATE
     Indication: SERUM FERRITIN INCREASED
     Dosage: 500 MG, 5 AMPULE,3-4 TIMES PER WEEK
     Route: 065
     Dates: end: 20150507
  3. SINTROM [Suspect]
     Active Substance: ACENOCOUMAROL
     Indication: PRODUCT USED FOR UNKNOWN INDICATION
     Route: 065
  4. XARELTO [Concomitant]
     Active Substance: RIVAROXABAN
     Indication: PRODUCT USED FOR UNKNOWN INDICATION
     Dosage: 20 MG, QD
     Route: 065
     Dates: start: 20150520
  5. DIUREN                             /00081101/ [Concomitant]
     Indication: URINE CALCIUM
     Dosage: UNK, QD
     Route: 065
     Dates: start: 20120327
  6. THYROHORMONE [Concomitant]
     Indication: HYPOTHYROIDISM
     Dosage: 1 DF, QD (0.1 EACH, 1X 1 PER DAY)
     Route: 065
  7. DESFERAL [Suspect]
     Active Substance: DEFEROXAMINE MESYLATE
     Dosage: RESUMED AT UNKNOWN DOSE
     Route: 065
     Dates: start: 20150714
  8. VIREAD [Concomitant]
     Active Substance: TENOFOVIR DISOPROXIL FUMARATE
     Indication: HEPATITIS B
     Dosage: 245 MG, QD
     Route: 065
     Dates: start: 201402
  9. EXJADE [Suspect]
     Active Substance: DEFERASIROX
     Indication: THALASSAEMIA BETA
     Dosage: 29 MG/KG (1750MG / 24H)
     Route: 065
     Dates: start: 200806, end: 20150507
  10. CARVEPEN [Concomitant]
     Active Substance: CARVEDILOL
     Indication: ATRIAL FIBRILLATION
     Dosage: 6.25 MG, 1 -1/2 -1/ DAYS
     Route: 065
     Dates: start: 20100622

REACTIONS (8)
  - Protein urine present [Unknown]
  - Urine calcium increased [Unknown]
  - Off label use [Unknown]
  - Glucose urine present [Unknown]
  - Abdominal pain upper [Unknown]
  - Myalgia [Unknown]
  - Urine uric acid increased [Unknown]
  - Transaminases increased [Unknown]

NARRATIVE: CASE EVENT DATE: 20150218
